FAERS Safety Report 10336965 (Version 1)
Quarter: 2014Q3

REPORT INFORMATION
  Report Type: Spontaneous
  Country: BR (occurrence: BR)
  Receive Date: 20140723
  Receipt Date: 20140723
  Transmission Date: 20150326
  Serious: Yes (Hospitalization, Other)
  Sender: FDA-Public Use
  Company Number: BR-PFIZER INC-2014202268

PATIENT
  Age: 10 Year
  Sex: Male
  Weight: 30 kg

DRUGS (3)
  1. GARDENAL [Concomitant]
     Active Substance: PHENOBARBITAL
     Dosage: ONE TABLET (100 MG), 1X/DAY
  2. SILDENAFIL CITRATE. [Suspect]
     Active Substance: SILDENAFIL CITRATE
     Indication: PULMONARY HYPERTENSION
     Dosage: 15 MG, 3X/DAY
     Route: 048
     Dates: start: 200403
  3. CAPTOPRIL. [Concomitant]
     Active Substance: CAPTOPRIL
     Dosage: 6.5 MG, 3X/DAY

REACTIONS (5)
  - Chest injury [Unknown]
  - Cardiac disorder [Unknown]
  - Pulmonary hypertension [Unknown]
  - Angiopathy [Unknown]
  - Lung disorder [Unknown]

NARRATIVE: CASE EVENT DATE: 2009
